FAERS Safety Report 5376997-2 (Version None)
Quarter: 2007Q2

REPORT INFORMATION
  Report Type: 
  Country: None (occurrence: None)
  Receive Date: 20070628
  Receipt Date: 20070628
  Transmission Date: 20071010
  Serious: No
  Sender: FDA-Public Use
  Company Number: None

PATIENT
  Age: 58 Year
  Weight: 65.7716 kg

DRUGS (1)
  1. RANITIDINE [Suspect]
     Indication: GASTRITIS
     Dosage: 50 MG  IV
     Route: 042
     Dates: start: 20070225, end: 20070225

REACTIONS (13)
  - BALANCE DISORDER [None]
  - BODY TEMPERATURE DECREASED [None]
  - CHEST DISCOMFORT [None]
  - COLD SWEAT [None]
  - DIZZINESS [None]
  - DYSPNOEA [None]
  - FEELING ABNORMAL [None]
  - FEELING COLD [None]
  - HEART RATE INCREASED [None]
  - NAUSEA [None]
  - RETCHING [None]
  - TACHYCARDIA [None]
  - TREMOR [None]
